FAERS Safety Report 8132870-8 (Version None)
Quarter: 2012Q1

REPORT INFORMATION
  Report Type: 
  Country: None (occurrence: None)
  Receive Date: 20120213
  Receipt Date: 20120206
  Transmission Date: 20120608
  Serious: Yes (Hospitalization)
  Sender: FDA-Public Use
  Company Number: BE-JNJFOC-20120203332

PATIENT
  Sex: Male

DRUGS (8)
  1. INSULIN [Concomitant]
  2. XARELTO [Suspect]
     Indication: ATRIAL FIBRILLATION
     Route: 065
     Dates: start: 20120125
  3. SOTALOL HCL [Concomitant]
  4. ANGIOTENSIN II ANTAGONISTS [Concomitant]
  5. XARELTO [Suspect]
     Indication: CEREBROVASCULAR ACCIDENT PROPHYLAXIS
     Route: 065
     Dates: start: 20120125
  6. BUMETANIDE [Concomitant]
  7. FENOFIBRATE [Concomitant]
  8. ZOPICLONE [Concomitant]

REACTIONS (1)
  - GOUTY ARTHRITIS [None]
